FAERS Safety Report 5073972-2 (Version None)
Quarter: 2006Q3

REPORT INFORMATION
  Report Type: 
  Country: None (occurrence: None)
  Receive Date: 20060808
  Receipt Date: 20060801
  Transmission Date: 20061208
  Serious: Yes (Hospitalization)
  Sender: FDA-Public Use
  Company Number: 2006SE04220

PATIENT
  Age: 28031 Day
  Sex: Female

DRUGS (4)
  1. NEXIUM [Suspect]
     Route: 048
     Dates: start: 20060406, end: 20060406
  2. RAMIPRIL + HYDROCHLOROTHIAZIDE (TRIATEC HCT) [Concomitant]
     Dosage: 2.5 + 12.5 MG/DAY
     Route: 048
     Dates: start: 20040101
  3. TENORMIN [Concomitant]
     Route: 048
     Dates: start: 20040101
  4. METFORMIN HCL [Concomitant]
     Route: 048
     Dates: start: 20040101

REACTIONS (5)
  - ANAPHYLACTOID REACTION [None]
  - BRONCHOSPASM [None]
  - HYPOTENSION [None]
  - PRURITUS GENERALISED [None]
  - VOMITING [None]
